FAERS Safety Report 5370807-5 (Version None)
Quarter: 2007Q2

REPORT INFORMATION
  Report Type: 
  Country: None (occurrence: None)
  Receive Date: 20070626
  Receipt Date: 20070622
  Transmission Date: 20071010
  Serious: Yes (Other)
  Sender: FDA-Public Use
  Company Number: D0053248A

PATIENT
  Age: 35 Year
  Sex: Female
  Weight: 100 kg

DRUGS (6)
  1. ALBUTEROL [Suspect]
     Route: 055
  2. BRONCHORETARD FORTE [Concomitant]
     Dosage: 500MG TWICE PER DAY
     Route: 048
  3. ATARAX [Concomitant]
     Route: 048
  4. SINGULAIR [Concomitant]
     Route: 048
  5. JODTHYROX [Concomitant]
     Dosage: 50UG PER DAY
     Route: 048
  6. TREVILOR [Concomitant]
     Route: 048

REACTIONS (2)
  - NAUSEA [None]
  - PHARMACEUTICAL PRODUCT COMPLAINT [None]
